FAERS Safety Report 14294006 (Version 2)
Quarter: 2017Q4

REPORT INFORMATION
  Report Type: Report from Study
  Country: US (occurrence: US)
  Receive Date: 20171217
  Receipt Date: 20171220
  Transmission Date: 20180321
  Serious: Yes (Other)
  Sender: FDA-Public Use
  Company Number: US-TEVA-2017-US-833006

PATIENT
  Age: 45 Year
  Sex: Female

DRUGS (1)
  1. COPAXONE [Suspect]
     Active Substance: GLATIRAMER ACETATE
     Indication: MULTIPLE SCLEROSIS
     Route: 058
     Dates: start: 20171122

REACTIONS (7)
  - Adverse drug reaction [Unknown]
  - Pruritus [Unknown]
  - Rash macular [Unknown]
  - Injection site swelling [Unknown]
  - Hypersensitivity [Unknown]
  - Contusion [Unknown]
  - Cellulitis [Unknown]

NARRATIVE: CASE EVENT DATE: 20171127
